FAERS Safety Report 11594847 (Version 3)
Quarter: 2016Q4

REPORT INFORMATION
  Report Type: Spontaneous
  Country: US (occurrence: US)
  Receive Date: 20151005
  Receipt Date: 20161117
  Transmission Date: 20170206
  Serious: No
  Sender: FDA-Public Use
  Company Number: US-ASTRAZENECA-2015SE81209

PATIENT
  Age: 834 Month
  Sex: Male
  Weight: 112.5 kg

DRUGS (11)
  1. ATORVASTATIN [Concomitant]
     Active Substance: ATORVASTATIN
  2. BABY ASPIRIN [Concomitant]
     Active Substance: ASPIRIN
     Dosage: ONE IN MORNING
  3. LEVOTHYROXIN [Concomitant]
     Active Substance: LEVOTHYROXINE
     Indication: THYROID DISORDER
  4. METFORMIN [Concomitant]
     Active Substance: METFORMIN HYDROCHLORIDE
     Indication: TYPE 2 DIABETES MELLITUS
  5. BYDUREON [Suspect]
     Active Substance: EXENATIDE
     Indication: TYPE 2 DIABETES MELLITUS
     Route: 058
     Dates: start: 2014
  6. METOPROLOL. [Concomitant]
     Active Substance: METOPROLOL
  7. GLIMEPIRIDE. [Concomitant]
     Active Substance: GLIMEPIRIDE
     Indication: TYPE 2 DIABETES MELLITUS
  8. FENOFIBRATE. [Concomitant]
     Active Substance: FENOFIBRATE
  9. TRIGLYCERIDE [Concomitant]
  10. BLOOD PRESSURE PILL [Concomitant]
     Active Substance: UNSPECIFIED INGREDIENT
  11. LISINOPRIL. [Concomitant]
     Active Substance: LISINOPRIL

REACTIONS (13)
  - Abdominal discomfort [Unknown]
  - Dysgeusia [Unknown]
  - Weight decreased [Unknown]
  - Eructation [Unknown]
  - Injection site haemorrhage [Unknown]
  - Body height decreased [Unknown]
  - Injection site pruritus [Recovered/Resolved]
  - Injection site erythema [Unknown]
  - Product quality issue [Unknown]
  - Injection site mass [Unknown]
  - Diarrhoea [Unknown]
  - Injection site pain [Unknown]
  - Drug dose omission [Unknown]

NARRATIVE: CASE EVENT DATE: 201609
